FAERS Safety Report 8790273 (Version 3)
Quarter: 2012Q4

REPORT INFORMATION
  Report Type: 
  Country: US (occurrence: US)
  Receive Date: 20120917
  Receipt Date: 20121108
  Transmission Date: 20130627
  Serious: Yes (Other)
  Sender: FDA-Public Use
  Company Number: US-JNJFOC-20120904956

PATIENT
  Age: 18 None
  Sex: Male
  Weight: 122.47 kg

DRUGS (7)
  1. REMICADE [Suspect]
     Indication: PSORIASIS
     Route: 042
     Dates: start: 20080918
  2. REMICADE [Suspect]
     Indication: PSORIATIC ARTHROPATHY
     Route: 042
     Dates: start: 20080918
  3. LAMOTRIGINE [Concomitant]
     Route: 065
  4. CLOBEX [Concomitant]
     Indication: HAIR DISORDER
     Route: 065
  5. SERTRALINE [Concomitant]
     Indication: DEPRESSION
     Route: 065
  6. FISH OIL [Concomitant]
     Dosage: occasionally
     Route: 065
  7. MULTIVITAMINS [Concomitant]
     Route: 065

REACTIONS (10)
  - Loss of consciousness [Recovered/Resolved]
  - Blood pressure decreased [Recovered/Resolved]
  - Dehydration [Unknown]
  - Eye movement disorder [Unknown]
  - Presyncope [Recovered/Resolved]
  - Gastrointestinal infection [Recovered/Resolved]
  - Hyperhidrosis [Unknown]
  - Diarrhoea [Unknown]
  - Vomiting [Unknown]
  - Pallor [Unknown]
